FAERS Safety Report 11685637 (Version 1)
Quarter: 2015Q4

REPORT INFORMATION
  Report Type: Spontaneous
  Country: JP (occurrence: JP)
  Receive Date: 20151030
  Receipt Date: 20151030
  Transmission Date: 20160304
  Serious: Yes (Other)
  Sender: FDA-Public Use
  Company Number: JP-ACTAVIS-2015-19735

PATIENT
  Age: 15 Year
  Sex: Female

DRUGS (1)
  1. MESALAZINE (UNKNOWN) [Suspect]
     Active Substance: MESALAMINE
     Indication: COLITIS ULCERATIVE
     Dosage: 2.25 G, DAILY
     Route: 048

REACTIONS (2)
  - Pneumonitis [Recovering/Resolving]
  - Pneumothorax [Recovered/Resolved]
